FAERS Safety Report 18434515 (Version 1)
Quarter: 2020Q4

REPORT INFORMATION
  Report Type: Spontaneous
  Country: US (occurrence: US)
  Receive Date: 20201028
  Receipt Date: 20201028
  Transmission Date: 20210114
  Serious: Yes (Other)
  Sender: FDA-Public Use
  Company Number: US-ROCHE-2702164

PATIENT
  Age: 81 Year
  Sex: Male
  Weight: 75.36 kg

DRUGS (10)
  1. GAZYVA [Suspect]
     Active Substance: OBINUTUZUMAB
     Route: 042
     Dates: start: 20200214
  2. IMBRUVICA [Concomitant]
     Active Substance: IBRUTINIB
     Indication: B-CELL LYMPHOMA
     Route: 048
  3. ALLEGRA [Concomitant]
     Active Substance: FEXOFENADINE HYDROCHLORIDE
     Indication: SEASONAL ALLERGY
     Route: 048
  4. GAZYVA [Suspect]
     Active Substance: OBINUTUZUMAB
     Indication: B-CELL LYMPHOMA
     Route: 042
     Dates: start: 2019, end: 20191226
  5. VITAMIN D3 [Concomitant]
     Active Substance: CHOLECALCIFEROL
     Indication: OSTEOPOROSIS
     Dosage: 50000 IU
     Route: 048
  6. MIRALAX [Concomitant]
     Active Substance: POLYETHYLENE GLYCOL 3350
     Indication: CONSTIPATION
     Dosage: ONE CAP FULL ;
     Route: 048
  7. GAMMA GLOBULIN [Concomitant]
     Active Substance: IMMUNE GLOBULIN NOS
     Route: 042
     Dates: start: 202001
  8. CALCIUM [Concomitant]
     Active Substance: CALCIUM
     Indication: OSTEOPOROSIS
     Route: 048
  9. MUCINEX [Concomitant]
     Active Substance: GUAIFENESIN
     Route: 048
  10. SILODOSIN. [Concomitant]
     Active Substance: SILODOSIN
     Route: 048

REACTIONS (7)
  - Skin disorder [Unknown]
  - Pneumonia [Unknown]
  - Drug ineffective [Unknown]
  - Mass [Unknown]
  - Nail disorder [Unknown]
  - Pain [Unknown]
  - Recurrent cancer [Unknown]

NARRATIVE: CASE EVENT DATE: 202001
